FAERS Safety Report 7582197-8 (Version None)
Quarter: 2011Q2

REPORT INFORMATION
  Report Type: 
  Country: None (occurrence: None)
  Receive Date: 20110630
  Receipt Date: 20110617
  Transmission Date: 20111010
  Serious: Yes (Other)
  Sender: FDA-Public Use
  Company Number: IE-AMGEN-IRLSP2011023993

PATIENT
  Age: 37 Year
  Sex: Female
  Weight: 60.998 kg

DRUGS (2)
  1. ISONIAZID [Concomitant]
     Indication: PROPHYLAXIS
     Dosage: 300 MG, 1X/DAY
     Route: 048
     Dates: start: 20081101, end: 20090801
  2. ENBREL [Suspect]
     Indication: PSORIATIC ARTHROPATHY
     Dosage: 50 MG, WEEKLY
     Dates: start: 20090101, end: 20090801

REACTIONS (2)
  - PSORIATIC ARTHROPATHY [None]
  - MALIGNANT MELANOMA [None]
